FAERS Safety Report 14294431 (Version 3)
Quarter: 2018Q1

REPORT INFORMATION
  Report Type: Spontaneous
  Country: US (occurrence: US)
  Receive Date: 20171218
  Receipt Date: 20180301
  Transmission Date: 20180509
  Serious: No
  Sender: FDA-Public Use
  Company Number: US-BRISTOL-MYERS SQUIBB COMPANY-BMS-2017-114083

PATIENT
  Sex: Female
  Weight: 75.7 kg

DRUGS (1)
  1. ORENCIA [Suspect]
     Active Substance: ABATACEPT
     Indication: RHEUMATOID ARTHRITIS
     Dosage: 125 MG, QWK
     Route: 058
     Dates: start: 201711

REACTIONS (5)
  - Head discomfort [Recovered/Resolved]
  - Ear infection [Unknown]
  - Sinusitis [Unknown]
  - Tympanic membrane perforation [Unknown]
  - Bronchitis [Unknown]
